FAERS Safety Report 5352304-6 (Version None)
Quarter: 2007Q2

REPORT INFORMATION
  Report Type: 
  Country: None (occurrence: None)
  Receive Date: 20070607
  Receipt Date: 20070531
  Transmission Date: 20071010
  Serious: Yes (Death, Hospitalization, Other)
  Sender: FDA-Public Use
  Company Number: 163-21880-07040638

PATIENT
  Age: 86 Year
  Sex: Female

DRUGS (11)
  1. REVLIMID [Suspect]
     Indication: MULTIPLE MYELOMA
     Dosage: 25 MG, QD X 21 DAYS, THEN 7 DAYS OFF, ORAL
     Route: 048
     Dates: start: 20070317, end: 20070101
  2. DEXAMETHASONE TAB [Concomitant]
  3. COUMADIN [Concomitant]
  4. DIGOXIN [Concomitant]
  5. OXYBUTYNIN (OXYBUTYNIN HYDROCHLORIDE) [Concomitant]
  6. COREG [Concomitant]
  7. ALLOPURINOL [Concomitant]
  8. INSULIN (INSULIN) [Concomitant]
  9. K-TAB [Concomitant]
  10. PERCOCET [Concomitant]
  11. FENTANYL [Concomitant]

REACTIONS (9)
  - BLOOD CALCIUM DECREASED [None]
  - CONFUSIONAL STATE [None]
  - CONSTIPATION [None]
  - FATIGUE [None]
  - INTERNATIONAL NORMALISED RATIO INCREASED [None]
  - INTESTINAL PERFORATION [None]
  - PROCTALGIA [None]
  - PROTHROMBIN TIME PROLONGED [None]
  - THROMBOCYTOPENIA [None]
